FAERS Safety Report 5012109-2 (Version None)
Quarter: 2006Q2

REPORT INFORMATION
  Report Type: 
  Country: None (occurrence: None)
  Receive Date: 20060525
  Receipt Date: 20060525
  Transmission Date: 20061013
  Serious: Yes (Other)
  Sender: FDA-Public Use
  Company Number: None

PATIENT
  Age: 15 Year
  Sex: Female
  Weight: 87.9978 kg

DRUGS (1)
  1. METHYLPHENIDATE 20 MG [Suspect]
     Indication: ATTENTION DEFICIT/HYPERACTIVITY DISORDER
     Dosage: 20 MG PO BID
     Route: 048

REACTIONS (4)
  - FEELING ABNORMAL [None]
  - IRRITABILITY [None]
  - PRURITUS [None]
  - SOMNOLENCE [None]
